FAERS Safety Report 4755843-1 (Version None)
Quarter: 2005Q3

REPORT INFORMATION
  Report Type: 
  Country: None (occurrence: None)
  Receive Date: 20050830
  Receipt Date: 20050512
  Transmission Date: 20060218
  Serious: No
  Sender: FDA-Public Use
  Company Number: US-BRISTOL-MYERS SQUIBB COMPANY-12966982

PATIENT

DRUGS (1)
  1. ERBITUX [Suspect]
     Route: 042
     Dates: start: 20050512, end: 20050512

REACTIONS (2)
  - ACCIDENTAL EXPOSURE [None]
  - NO ADVERSE EFFECT [None]
